FAERS Safety Report 7141384-3 (Version None)
Quarter: 2010Q4

REPORT INFORMATION
  Report Type: 
  Country: None (occurrence: None)
  Receive Date: 20101202
  Receipt Date: 20101202
  Transmission Date: 20110411
  Serious: Yes (Hospitalization, Other)
  Sender: FDA-Public Use
  Company Number: None

PATIENT
  Sex: Female
  Weight: 45.6319 kg

DRUGS (1)
  1. RISPERDAL [Suspect]
     Indication: BIPOLAR I DISORDER
     Dosage: 2 NIGHT QD@HS MOUTH
     Route: 048
     Dates: start: 20101014

REACTIONS (10)
  - CHEST DISCOMFORT [None]
  - COUGH [None]
  - DYSPNOEA [None]
  - HEADACHE [None]
  - NASAL CONGESTION [None]
  - OPEN WOUND [None]
  - OROPHARYNGEAL PAIN [None]
  - RHINORRHOEA [None]
  - VISION BLURRED [None]
  - WHEEZING [None]
